FAERS Safety Report 26027047 (Version 1)
Quarter: 2025Q4

REPORT INFORMATION
  Report Type: Spontaneous
  Country: CN (occurrence: CN)
  Receive Date: 20251111
  Receipt Date: 20251111
  Transmission Date: 20260117
  Serious: Yes (Other)
  Sender: PFIZER
  Company Number: CN-PFIZER INC-PV202500131540

PATIENT
  Age: 32 Year
  Sex: Female
  Weight: 62.5 kg

DRUGS (2)
  1. METHOTREXATE SODIUM [Suspect]
     Active Substance: METHOTREXATE SODIUM
     Indication: Abortion induced
     Dosage: 80 MG, WEEKLY
     Route: 030
     Dates: start: 20250917, end: 20250924
  2. MIFEPRISTONE [Concomitant]
     Active Substance: MIFEPRISTONE
     Indication: Abortion induced
     Dosage: 50 MG, 2X/DAY
     Route: 048
     Dates: start: 20250923, end: 20250926

REACTIONS (5)
  - Liver injury [Recovering/Resolving]
  - Ruptured ectopic pregnancy [Recovering/Resolving]
  - Abdominal distension [Recovering/Resolving]
  - Pelvic fluid collection [Recovering/Resolving]
  - Off label use [Unknown]

NARRATIVE: CASE EVENT DATE: 20250917
